FAERS Safety Report 7326027-8 (Version None)
Quarter: 2011Q1

REPORT INFORMATION
  Report Type: 
  Country: None (occurrence: None)
  Receive Date: 20110218
  Receipt Date: 20110203
  Transmission Date: 20110831
  Serious: Yes (Disabling, Other)
  Sender: FDA-Public Use
  Company Number: 747737

PATIENT
  Age: 49 Year
  Sex: Female
  Weight: 49.8957 kg

DRUGS (9)
  1. EPINEPHRINE [Concomitant]
  2. MARCAINE [Suspect]
     Indication: PAIN MANAGEMENT
     Dosage: SEE IMAGE
     Route: 014
     Dates: start: 20071022, end: 20071025
  3. MARCAINE [Suspect]
     Indication: PAIN MANAGEMENT
     Dosage: SEE IMAGE
     Route: 014
     Dates: start: 20071022, end: 20071025
  4. PREMPRO [Concomitant]
  5. IBUPROFEN [Concomitant]
  6. PERCOCET [Concomitant]
  7. VICODIN [Concomitant]
  8. OXYCONTIN [Concomitant]
  9. (ANESTHETICS, GENERAL) [Concomitant]

REACTIONS (4)
  - MULTIPLE INJURIES [None]
  - OSTEOARTHRITIS [None]
  - BONE CYST [None]
  - CHONDROPATHY [None]
